FAERS Safety Report 17484186 (Version 4)
Quarter: 2020Q2

REPORT INFORMATION
  Report Type: Spontaneous
  Country: IT (occurrence: IT)
  Receive Date: 20200302
  Receipt Date: 20200624
  Transmission Date: 20200713
  Serious: Yes (Hospitalization)
  Sender: FDA-Public Use
  Company Number: NVSC2020IT053202

PATIENT
  Age: 61 Year
  Sex: Male
  Weight: 77 kg

DRUGS (6)
  1. TAFINLAR [Suspect]
     Active Substance: DABRAFENIB MESYLATE
     Indication: METASTATIC MALIGNANT MELANOMA
     Dosage: 300 MG, QD
     Route: 048
     Dates: start: 20200316, end: 20200325
  2. SIMPONI [Concomitant]
     Active Substance: GOLIMUMAB
     Indication: ANKYLOSING SPONDYLITIS
     Dosage: 50 MG
     Route: 058
     Dates: start: 20150501, end: 20191125
  3. ACLASTA [Suspect]
     Active Substance: ZOLEDRONIC ACID
     Indication: OSTEITIS DEFORMANS
     Dosage: 5 UG, CYCLIC
     Route: 065
     Dates: start: 20181205, end: 20181205
  4. REUMAFLEX [Concomitant]
     Indication: ANKYLOSING SPONDYLITIS
     Dosage: 15 MG
     Route: 058
     Dates: start: 20160601, end: 20191130
  5. LOSARTAN. [Concomitant]
     Active Substance: LOSARTAN
     Indication: PRODUCT USED FOR UNKNOWN INDICATION
     Dosage: UNK
     Route: 065
  6. AMLODIPINE [Concomitant]
     Active Substance: AMLODIPINE BESYLATE
     Indication: PRODUCT USED FOR UNKNOWN INDICATION
     Dosage: UNK
     Route: 065

REACTIONS (7)
  - Eye pain [Not Recovered/Not Resolved]
  - Intraocular pressure increased [Unknown]
  - Glaucoma [Not Recovered/Not Resolved]
  - Photophobia [Not Recovered/Not Resolved]
  - Ocular hyperaemia [Unknown]
  - Uveitis [Not Recovered/Not Resolved]
  - Photopsia [Unknown]

NARRATIVE: CASE EVENT DATE: 201812
